FAERS Safety Report 9518959 (Version 1)
Quarter: 2013Q3

REPORT INFORMATION
  Report Type: Spontaneous
  Country: US (occurrence: US)
  Receive Date: 20130912
  Receipt Date: 20130912
  Transmission Date: 20140515
  Serious: Yes (Other)
  Sender: FDA-Public Use
  Company Number: US-PFIZER INC-2013262756

PATIENT
  Age: 58 Year
  Sex: Male
  Weight: 136 kg

DRUGS (4)
  1. LYRICA [Suspect]
     Indication: NEUROPATHY PERIPHERAL
     Dosage: 300 MG, UNK
  2. LYRICA [Suspect]
     Dosage: 150 MG, 2X/DAY
  3. LYRICA [Suspect]
     Dosage: 75 MG, 1X/DAY
     Dates: start: 201309
  4. ALLOPURINOL [Concomitant]
     Indication: GOUT
     Dosage: 400 MG, 1X/DAY

REACTIONS (3)
  - Dyspnoea [Unknown]
  - Local swelling [Recovering/Resolving]
  - Joint swelling [Recovering/Resolving]
